FAERS Safety Report 6379969-4 (Version None)
Quarter: 2009Q3

REPORT INFORMATION
  Report Type: 
  Country: None (occurrence: None)
  Receive Date: 20090923
  Receipt Date: 20090910
  Transmission Date: 20100115
  Serious: Yes (Hospitalization, Other)
  Sender: FDA-Public Use
  Company Number: DE-1170551

PATIENT
  Age: 67 Year
  Sex: Male

DRUGS (5)
  1. FLUORESCITE [Suspect]
     Dosage: 5 ML INTRAVENOUS BOLUS
     Route: 040
     Dates: start: 20090720
  2. METOPROLOL SUCCINATE [Concomitant]
  3. ACETYLSALICYLIC ACID SRT [Concomitant]
  4. MICARDIS PLUS (PRITOR) [Concomitant]
  5. AMLODIPINE [Concomitant]

REACTIONS (3)
  - ANGINA PECTORIS [None]
  - BLOOD PRESSURE INCREASED [None]
  - MYOCARDIAL INFARCTION [None]
